FAERS Safety Report 9740758 (Version 3)
Quarter: 2014Q1

REPORT INFORMATION
  Report Type: Spontaneous
  Country: CN (occurrence: CN)
  Receive Date: 20131209
  Receipt Date: 20140227
  Transmission Date: 20141002
  Serious: Yes (Other)
  Sender: FDA-Public Use
  Company Number: CN-PFIZER INC-2013349426

PATIENT
  Age: 39 Year
  Sex: 0
  Weight: 65 kg

DRUGS (3)
  1. MS CONTIN [Suspect]
     Indication: PAIN IN EXTREMITY
     Dosage: 40 MG, 2X/DAY
     Route: 048
     Dates: start: 20131122, end: 20131123
  2. MORPHINE HYDROCHLORIDE [Concomitant]
     Indication: PAIN IN EXTREMITY
     Dosage: 50 MG, UNK
     Dates: start: 20131121, end: 20131122
  3. MORPHINE [Concomitant]
     Indication: PAIN IN EXTREMITY
     Dosage: 10 MG, UNK
     Dates: start: 20131121, end: 20131122

REACTIONS (6)
  - Epilepsy [Recovered/Resolved]
  - Altered state of consciousness [Recovering/Resolving]
  - Bite [Recovering/Resolving]
  - Convulsion [Recovering/Resolving]
  - Irritability [Recovered/Resolved]
  - Miosis [Recovering/Resolving]
